FAERS Safety Report 15400672 (Version 1)
Quarter: 2018Q3

REPORT INFORMATION
  Report Type: Report from Study
  Country: US (occurrence: US)
  Receive Date: 20180919
  Receipt Date: 20180919
  Transmission Date: 20181010
  Serious: No
  Sender: FDA-Public Use
  Company Number: PHEH2018US039336

PATIENT
  Sex: Female

DRUGS (1)
  1. COSENTYX [Suspect]
     Active Substance: SECUKINUMAB
     Indication: PRODUCT USED FOR UNKNOWN INDICATION
     Dosage: 300 MG, QMO
     Route: 042
     Dates: start: 20180424

REACTIONS (6)
  - Skin swelling [Unknown]
  - Incorrect route of drug administration [Unknown]
  - Rash [Unknown]
  - Rash pruritic [Unknown]
  - Exfoliative rash [Unknown]
  - Rash erythematous [Unknown]
